FAERS Safety Report 7452783 (Version 6)
Quarter: 2012Q4

REPORT INFORMATION
  Report Type: Report from Study
  Country: RO (occurrence: RO)
  Receive Date: 20100702
  Receipt Date: 20121107
  Transmission Date: 20130627
  Serious: Yes (Other)
  Sender: FDA-Public Use
  Company Number: RO-ROCHE-711070

PATIENT
  Age: 50 Year
  Sex: Female
  Weight: 67 kg

DRUGS (4)
  1. PEG-INTERFERON ALFA 2A [Suspect]
     Indication: CHRONIC HEPATITIS C
     Dosage: DOSE: 180, UNIT AND FORM:NOT REPORTED
     Route: 058
     Dates: start: 20100212, end: 20100618
  2. PEG-INTERFERON ALFA 2A [Suspect]
     Dosage: 180
     Route: 058
  3. RIBAVIRIN [Suspect]
     Indication: CHRONIC HEPATITIS C
     Dosage: DOSE:1200 , FREQUENCY: DAILY, UNIT AND FORM :NOT REPORTED
     Route: 048
     Dates: start: 20100212, end: 20100618
  4. RIBAVIRIN [Suspect]
     Dosage: DOSE:1200 , FREQUENCY: DAILY, UNIT AND FORM :NOT REPORTED
     Route: 048
     Dates: start: 20100701, end: 20100713

REACTIONS (1)
  - Photodermatosis [Recovering/Resolving]
